FAERS Safety Report 13835040 (Version 1)
Quarter: 2017Q3

REPORT INFORMATION
  Report Type: Spontaneous
  Country: DE (occurrence: DE)
  Receive Date: 20170804
  Receipt Date: 20170804
  Transmission Date: 20171127
  Serious: Yes (Congenital Anomaly)
  Sender: FDA-Public Use
  Company Number: DE-SUN PHARMACEUTICAL INDUSTRIES LTD-2017RR-146796

PATIENT
  Age: 1 Day
  Sex: Female

DRUGS (2)
  1. CITALOPRAM [Suspect]
     Active Substance: CITALOPRAM HYDROBROMIDE
     Indication: PANIC ATTACK
     Dosage: 10 MG, DAILY
     Route: 064
     Dates: start: 20160507, end: 20170219
  2. FOLIO FORTE [Concomitant]
     Active Substance: FOLIC ACID\VITAMINS
     Indication: PROPHYLAXIS OF NEURAL TUBE DEFECT
     Dosage: 0.8 MG, DAILY
     Route: 064
     Dates: start: 20160507, end: 20170219

REACTIONS (4)
  - Choanal atresia [Recovered/Resolved]
  - Neonatal hypotension [Recovered/Resolved]
  - Atrial septal defect [Not Recovered/Not Resolved]
  - Mitral valve incompetence [Unknown]

NARRATIVE: CASE EVENT DATE: 20170219
